FAERS Safety Report 9825513 (Version 2)
Quarter: 2014Q1

REPORT INFORMATION
  Report Type: Spontaneous
  Country: US (occurrence: US)
  Receive Date: 20140117
  Receipt Date: 20140207
  Transmission Date: 20141002
  Serious: No
  Sender: FDA-Public Use
  Company Number: US-PFIZER INC-2014012523

PATIENT
  Age: 69 Year
  Sex: Female

DRUGS (4)
  1. XELJANZ [Suspect]
     Dosage: 5 MG, 2X/DAY
     Route: 048
     Dates: start: 20131229, end: 20140102
  2. XELJANZ [Suspect]
     Dosage: UNK
     Route: 048
     Dates: start: 20131229, end: 20140102
  3. METHOTREXATE [Concomitant]
     Indication: RHEUMATOID ARTHRITIS
     Dosage: 25 MG, UNK
     Route: 058
  4. PREDNISONE [Concomitant]
     Dosage: 5 MG, UNK

REACTIONS (9)
  - Erythema [Unknown]
  - Pruritus [Unknown]
  - Headache [Recovered/Resolved]
  - Lip swelling [Recovered/Resolved]
  - Lip pain [Unknown]
  - Diarrhoea [Recovered/Resolved]
  - Fatigue [Unknown]
  - Swelling face [Recovered/Resolved]
  - Hypersensitivity [Recovered/Resolved]
